FAERS Safety Report 7599490-5 (Version None)
Quarter: 2011Q3

REPORT INFORMATION
  Report Type: 
  Country: None (occurrence: None)
  Receive Date: 20110711
  Receipt Date: 20110624
  Transmission Date: 20111222
  Serious: Yes (Hospitalization, Other)
  Sender: FDA-Public Use
  Company Number: RO-BAYER-2011-052077

PATIENT
  Age: 28 Year
  Sex: Female

DRUGS (17)
  1. CODEINE [Concomitant]
     Indication: BONE PAIN
     Dosage: UNK
     Route: 048
     Dates: start: 20110401, end: 20110601
  2. MORPHINE SULFATE [Concomitant]
     Dosage: 1/2 TABLET EVERY 12 HOURS
     Route: 048
  3. PARACETAMOL WITH CODEINE PHOSPHATE [Concomitant]
     Dosage: 1 DF, PRN IN AM
     Route: 048
  4. ALGOCALMIN [Concomitant]
     Dosage: 1 DF, QD
     Route: 048
  5. LEXOTAN [Concomitant]
     Dosage: 1/2 TABLET 3 MG, PRN
     Route: 048
  6. ISODINIT [Concomitant]
     Dosage: 20 MG, BID
     Route: 048
  7. NITROGLYCERIN [Concomitant]
     Indication: CHEST PAIN
     Dosage: 1/2 TABLET, PRN
     Route: 060
  8. NEXAVAR [Suspect]
     Indication: HEPATIC NEOPLASM MALIGNANT
     Dosage: DAILY DOSE 800 MG
     Route: 048
     Dates: start: 20110503, end: 20110604
  9. ASPIRIN [Concomitant]
     Dosage: 1 DF, QD
     Route: 048
  10. PANTOPRAZOLE [Concomitant]
     Dosage: 40 MG, QD
     Route: 048
  11. CYMBALTA [Concomitant]
     Dosage: 1 DF, HS
     Route: 048
  12. PIAFEN [Concomitant]
     Dosage: 1 DF, PRN
     Route: 048
  13. ACETAMINOPHEN [Concomitant]
     Indication: BONE PAIN
     Dosage: DAILY DOSE 1500 MG
     Route: 048
     Dates: start: 20110401, end: 20110601
  14. METOPROLOL TARTRATE [Concomitant]
     Dosage: 50 MG, BID
  15. ONDANSETRON [Concomitant]
     Dosage: 1 DF, PRN
     Route: 048
  16. DILTIAZEM [Concomitant]
     Dosage: 30 MG, BID
     Route: 048
  17. FENTANYL [Concomitant]
     Dosage: 25 MG, Q72HR
     Route: 062

REACTIONS (15)
  - ACUTE MYOCARDIAL INFARCTION [None]
  - WEIGHT DECREASED [None]
  - CHEST PAIN [None]
  - ARTHRALGIA [None]
  - GINGIVAL BLEEDING [None]
  - ANGINA PECTORIS [None]
  - ASTHENIA [None]
  - PALPITATIONS [None]
  - SINUS TACHYCARDIA [None]
  - ABDOMINAL PAIN [None]
  - METASTASES TO BONE [None]
  - GASTROINTESTINAL HYPOMOTILITY [None]
  - HYPERCHOLESTEROLAEMIA [None]
  - HYPERTRIGLYCERIDAEMIA [None]
  - VERTIGO [None]
